FAERS Safety Report 6299326-9 (Version None)
Quarter: 2009Q3

REPORT INFORMATION
  Report Type: 
  Country: None (occurrence: None)
  Receive Date: 20090806
  Receipt Date: 20090803
  Transmission Date: 20100115
  Serious: Yes (Other)
  Sender: FDA-Public Use
  Company Number: US-ASTRAZENECA-2009UW21680

PATIENT
  Sex: Female

DRUGS (3)
  1. TOPROL-XL [Suspect]
     Route: 048
  2. DIGOXIN [Concomitant]
  3. ASPIRIN [Concomitant]

REACTIONS (2)
  - FATIGUE [None]
  - LOSS OF CONSCIOUSNESS [None]
